FAERS Safety Report 15505289 (Version 3)
Quarter: 2018Q4

REPORT INFORMATION
  Report Type: Spontaneous
  Country: US (occurrence: US)
  Receive Date: 20181016
  Receipt Date: 20181205
  Transmission Date: 20190205
  Serious: No
  Sender: FDA-Public Use
  Company Number: US-AMGEN-USASP2018142101

PATIENT
  Age: 72 Year
  Sex: Female
  Weight: 52.15 kg

DRUGS (1)
  1. PROLIA [Suspect]
     Active Substance: DENOSUMAB
     Indication: OSTEOPOROSIS
     Dosage: 60 MG, UNK
     Route: 065
     Dates: start: 20180906

REACTIONS (2)
  - Product storage error [Unknown]
  - Bone pain [Unknown]

NARRATIVE: CASE EVENT DATE: 20181005
